FAERS Safety Report 13709991 (Version 2)
Quarter: 2017Q4

REPORT INFORMATION
  Report Type: Spontaneous
  Country: US (occurrence: US)
  Receive Date: 20170703
  Receipt Date: 20171123
  Transmission Date: 20180320
  Serious: Yes (Life-Threatening, Hospitalization, Other)
  Sender: FDA-Public Use
  Company Number: US-SUN PHARMACEUTICAL INDUSTRIES LTD-2017US-144476

PATIENT
  Age: 16 Year
  Sex: Female

DRUGS (4)
  1. DIPHENHYDRAMINE. [Concomitant]
     Active Substance: DIPHENHYDRAMINE
  2. IBUPROFEN. [Concomitant]
     Active Substance: IBUPROFEN
  3. OMEPRAZOLE. [Concomitant]
     Active Substance: OMEPRAZOLE
  4. FERROUS SULFATE. [Suspect]
     Active Substance: FERROUS SULFATE
     Indication: PRODUCT USED FOR UNKNOWN INDICATION
     Dosage: 54 TABLETS
     Route: 048

REACTIONS (4)
  - Intentional overdose [Recovered/Resolved]
  - Hepatic encephalopathy [Recovered/Resolved]
  - Acute hepatic failure [Recovered/Resolved]
  - Hepatotoxicity [Recovered/Resolved]
